FAERS Safety Report 13619076 (Version 1)
Quarter: 2017Q2

REPORT INFORMATION
  Report Type: Spontaneous
  Country: US (occurrence: US)
  Receive Date: 20170606
  Receipt Date: 20170606
  Transmission Date: 20170830
  Serious: No
  Sender: FDA-Public Use
  Company Number: US-AMGEN-USASP2016099106

PATIENT
  Age: 79 Year

DRUGS (1)
  1. PROCRIT [Suspect]
     Active Substance: ERYTHROPOIETIN
     Indication: PRODUCT USED FOR UNKNOWN INDICATION
     Dosage: 20,000/ 1ML, QWK
     Route: 058
     Dates: start: 201507

REACTIONS (2)
  - Drug dose omission [Unknown]
  - Incorrect product storage [Unknown]
